FAERS Safety Report 6271346-X (Version None)
Quarter: 2009Q3

REPORT INFORMATION
  Report Type: 
  Country: None (occurrence: None)
  Receive Date: 20090716
  Receipt Date: 20090716
  Transmission Date: 20100115
  Serious: No
  Sender: FDA-Public Use
  Company Number: None

PATIENT
  Age: 59 Year
  Sex: Female
  Weight: 49.8957 kg

DRUGS (1)
  1. DOXYCYCLINE HYCLATE [Suspect]
     Indication: LYME DISEASE
     Dosage: 1 2X DAILY
     Dates: start: 20090629, end: 20090630

REACTIONS (3)
  - HEART RATE INCREASED [None]
  - PRURITUS GENERALISED [None]
  - RASH MACULAR [None]
